FAERS Safety Report 10652372 (Version 2)
Quarter: 2017Q1

REPORT INFORMATION
  Report Type: Report from Study
  Country: None (occurrence: CA)
  Receive Date: 20141215
  Receipt Date: 20170115
  Transmission Date: 20170428
  Serious: Yes (Hospitalization, Other)
  Sender: FDA-Public Use
  Company Number: CA-ABBVIE-14K-028-1318300-00

PATIENT
  Age: 66 Year
  Sex: Female
  Weight: 51.3 kg

DRUGS (2)
  1. HUMIRA [Suspect]
     Active Substance: ADALIMUMAB
     Indication: CROHN^S DISEASE
     Route: 058
     Dates: start: 20111119, end: 20141128
  2. HUMIRA [Suspect]
     Active Substance: ADALIMUMAB
     Dosage: ALTERNATING 40 MG AND 80 MG
     Route: 058
     Dates: start: 2014, end: 20170106

REACTIONS (8)
  - Drug ineffective [Not Recovered/Not Resolved]
  - White blood cell count increased [Recovered/Resolved]
  - Stress [Not Recovered/Not Resolved]
  - Hernia [Not Recovered/Not Resolved]
  - Faecal vomiting [Recovered/Resolved]
  - Suture rupture [Recovered/Resolved]
  - Hernia pain [Not Recovered/Not Resolved]
  - Vomiting [Recovered/Resolved]

NARRATIVE: CASE EVENT DATE: 201402
